FAERS Safety Report 7817152-3 (Version None)
Quarter: 2011Q4

REPORT INFORMATION
  Report Type: 
  Country: None (occurrence: None)
  Receive Date: 20111017
  Receipt Date: 20111017
  Transmission Date: 20120403
  Serious: Yes (Life-Threatening, Hospitalization)
  Sender: FDA-Public Use
  Company Number: None

PATIENT
  Age: 26 Year
  Sex: Female
  Weight: 54.431 kg

DRUGS (3)
  1. MIDOL COMPLETE CAPLETS [Suspect]
     Indication: DYSMENORRHOEA
     Dosage: 2 CAPLETS
     Route: 048
     Dates: start: 20110815, end: 20110815
  2. MIDOL COMPLETE CAPLETS [Suspect]
     Indication: ABDOMINAL DISTENSION
     Dosage: 2 CAPLETS
     Route: 048
     Dates: start: 20110815, end: 20110815
  3. MIDOL COMPLETE CAPLETS [Suspect]
     Indication: PAIN
     Dosage: 2 CAPLETS
     Route: 048
     Dates: start: 20110815, end: 20110815

REACTIONS (3)
  - HEART RATE ABNORMAL [None]
  - BLOOD PRESSURE ABNORMAL [None]
  - SYNCOPE [None]
